FAERS Safety Report 6392176-4 (Version None)
Quarter: 2009Q4

REPORT INFORMATION
  Report Type: 
  Country: None (occurrence: None)
  Receive Date: 20091007
  Receipt Date: 20090923
  Transmission Date: 20100525
  Serious: Yes (Death, Hospitalization)
  Sender: FDA-Public Use
  Company Number: US-PFIZER INC-2009275886

PATIENT
  Age: 6 Year
  Sex: Female
  Weight: 23 kg

DRUGS (1)
  1. SUNITINIB MALATE [Suspect]
     Indication: GLIOMA
     Dosage: 20 MG/M2, CYCLE = 42 DAYS DAYS 1-28
     Route: 048
     Dates: start: 20090120, end: 20090210

REACTIONS (3)
  - ASPIRATION [None]
  - CEREBRAL HAEMORRHAGE [None]
  - CRANIAL NERVE DISORDER [None]
